FAERS Safety Report 5381076-4 (Version None)
Quarter: 2007Q3

REPORT INFORMATION
  Report Type: 
  Country: None (occurrence: None)
  Receive Date: 20070706
  Receipt Date: 20070702
  Transmission Date: 20080115
  Serious: Yes (Hospitalization, Other)
  Sender: FDA-Public Use
  Company Number: US-PFIZER INC-2006121087

PATIENT
  Sex: Female
  Weight: 83.9 kg

DRUGS (4)
  1. CELEBREX [Suspect]
     Indication: ARTHRITIS
  2. CELEBREX [Suspect]
     Indication: PAIN MANAGEMENT
  3. VIOXX [Suspect]
     Indication: ARTHRITIS
  4. VIOXX [Suspect]
     Indication: PAIN MANAGEMENT

REACTIONS (3)
  - ANXIETY [None]
  - DEPRESSION [None]
  - ISCHAEMIC STROKE [None]
